FAERS Safety Report 9538644 (Version 2)
Quarter: 2013Q4

REPORT INFORMATION
  Report Type: Spontaneous
  Country: NO (occurrence: NO)
  Receive Date: 20130920
  Receipt Date: 20131010
  Transmission Date: 20140711
  Serious: Yes (Other)
  Sender: FDA-Public Use
  Company Number: PHHY2013NO103680

PATIENT
  Age: 30 Year
  Sex: Female

DRUGS (7)
  1. GILENYA [Suspect]
     Indication: MULTIPLE SCLEROSIS
     Dosage: 0.5 MG, QD
     Route: 048
     Dates: start: 20130523, end: 20130903
  2. LYRICA [Concomitant]
     Indication: PAIN
     Dosage: 150 MG, BID
     Route: 048
  3. NORSPAN//BUPRENORPHINE [Concomitant]
     Indication: PAIN
     Dosage: 20 MG, UNK
  4. NEURONTIN [Concomitant]
     Route: 048
  5. PREDNISOLONE [Concomitant]
     Indication: FIBRODYSPLASIA OSSIFICANS PROGRESSIVA
     Dosage: 20 MG, BID
     Route: 048
  6. SINGULAIR [Concomitant]
     Indication: ASTHMA
     Dosage: 10 MG, QD
     Route: 048
  7. CALCIORAN [Concomitant]
     Indication: FIBRODYSPLASIA OSSIFICANS PROGRESSIVA
     Route: 048

REACTIONS (3)
  - Alopecia [Recovering/Resolving]
  - Lymphocyte count decreased [Unknown]
  - Gamma-glutamyltransferase increased [Unknown]
